FAERS Safety Report 13133529 (Version 1)
Quarter: 2017Q1

REPORT INFORMATION
  Report Type: Spontaneous
  Country: US (occurrence: US)
  Receive Date: 20170119
  Receipt Date: 20170119
  Transmission Date: 20170428
  Serious: Yes (Hospitalization)
  Sender: FDA-Public Use
  Company Number: None

PATIENT
  Age: 52 Year
  Sex: Female

DRUGS (10)
  1. REBIF [Suspect]
     Active Substance: INTERFERON BETA-1A
     Indication: MULTIPLE SCLEROSIS
     Route: 058
     Dates: start: 20061205
  2. TROSPIUM [Concomitant]
     Active Substance: TROSPIUM
  3. NAPROXEN. [Concomitant]
     Active Substance: NAPROXEN
  4. BACLOFEN. [Concomitant]
     Active Substance: BACLOFEN
  5. ACTONEL [Concomitant]
     Active Substance: RISEDRONATE SODIUM
  6. AMPYRA [Concomitant]
     Active Substance: DALFAMPRIDINE
  7. CIPROFLOXACIN. [Concomitant]
     Active Substance: CIPROFLOXACIN
  8. VITAMIN D3 [Concomitant]
     Active Substance: CHOLECALCIFEROL
  9. VITAMIN B12 [Concomitant]
     Active Substance: CYANOCOBALAMIN
  10. KEPPRA [Concomitant]
     Active Substance: LEVETIRACETAM

REACTIONS (2)
  - Cystoscopy [None]
  - Incontinence [None]

NARRATIVE: CASE EVENT DATE: 20170110
